FAERS Safety Report 8940663 (Version 1)
Quarter: 2012Q4

REPORT INFORMATION
  Report Type: 
  Country: MX (occurrence: MX)
  Receive Date: 20121203
  Receipt Date: 20121203
  Transmission Date: 20130627
  Serious: Yes (Other)
  Sender: FDA-Public Use
  Company Number: PHHY2012MX051033

PATIENT
  Age: 66 None
  Sex: Female

DRUGS (4)
  1. MIFLONIDE [Suspect]
     Indication: CHRONIC OBSTRUCTIVE PULMONARY DISEASE
     Dosage: 400 ug, daily
     Dates: start: 201204
  2. MIFLONIDE [Suspect]
     Dosage: 2 DF, QD
     Dates: start: 20120624
  3. FORADILE [Suspect]
     Dosage: 2 DF, QD
     Dates: start: 20120624
  4. PRAVASTATINE [Concomitant]
     Dosage: 2 DF, daily

REACTIONS (9)
  - VIIth nerve paralysis [Recovered/Resolved]
  - Dyspnoea [Not Recovered/Not Resolved]
  - Lung disorder [Not Recovered/Not Resolved]
  - Pain [Unknown]
  - Cardiovascular disorder [Not Recovered/Not Resolved]
  - Feeling abnormal [Unknown]
  - Increased upper airway secretion [Unknown]
  - Speech disorder [Unknown]
  - Gait disturbance [Unknown]
